FAERS Safety Report 13020663 (Version 1)
Quarter: 2016Q4

REPORT INFORMATION
  Report Type: Spontaneous
  Country: BR (occurrence: BR)
  Receive Date: 20161212
  Receipt Date: 20161212
  Transmission Date: 20170207
  Serious: Yes (Death)
  Sender: FDA-Public Use
  Company Number: BR-SA-2016SA217405

PATIENT
  Age: 38 Year
  Sex: Female
  Weight: 51.8 kg

DRUGS (1)
  1. CEREZYME [Suspect]
     Active Substance: IMIGLUCERASE
     Indication: GAUCHER^S DISEASE TYPE I
     Dosage: DOSE 8/7 VIALS
     Route: 042
     Dates: start: 20130117, end: 20161025

REACTIONS (6)
  - Systemic lupus erythematosus [Fatal]
  - Diabetes mellitus [Fatal]
  - Hypertension [Fatal]
  - Respiratory failure [Fatal]
  - Lupus nephritis [Fatal]
  - Chronic kidney disease [Fatal]
